FAERS Safety Report 18802099 (Version 8)
Quarter: 2022Q2

REPORT INFORMATION
  Report Type: Spontaneous
  Country: PL (occurrence: PL)
  Receive Date: 20210128
  Receipt Date: 20220501
  Transmission Date: 20220721
  Serious: Yes (Hospitalization, Other)
  Sender: FDA-Public Use
  Company Number: NVSC2020PL313439

PATIENT
  Age: 46 Year
  Sex: Female

DRUGS (11)
  1. RAMIPRIL [Suspect]
     Active Substance: RAMIPRIL
     Indication: Hypertension
     Dosage: 2.5 MG, QD
     Route: 065
  2. RAMIPRIL [Suspect]
     Active Substance: RAMIPRIL
     Dosage: 2.5 MG
     Route: 065
  3. AZITHROMYCIN [Suspect]
     Active Substance: AZITHROMYCIN
     Indication: Antibiotic therapy
     Dosage: 500 MG, UNKNOWN
     Route: 065
  4. AZITHROMYCIN [Suspect]
     Active Substance: AZITHROMYCIN
     Indication: Pyrexia
  5. CLINDAMYCIN PHOSPHATE [Suspect]
     Active Substance: CLINDAMYCIN PHOSPHATE
     Indication: Erysipelas
     Dosage: UNK, UNKNOWN
     Route: 042
  6. PENICILLIN G [Suspect]
     Active Substance: PENICILLIN G
     Indication: Erysipelas
     Dosage: UNK, UNKNOWN
     Route: 065
  7. DASATINIB [Suspect]
     Active Substance: DASATINIB
     Indication: Chronic myeloid leukaemia
     Dosage: UNK, UNKNOWN
     Route: 065
  8. HYDROXYZINE [Suspect]
     Active Substance: HYDROXYZINE HYDROCHLORIDE
     Indication: Urticaria
     Dosage: UNK, UNKNOWN
     Route: 065
  9. DEXAMETHASONE [Suspect]
     Active Substance: DEXAMETHASONE
     Indication: Urticaria
     Dosage: UNK, UNKNOWN
     Route: 065
  10. CLEMASTINE FUMARATE [Suspect]
     Active Substance: CLEMASTINE FUMARATE
     Indication: Urticaria
     Dosage: UNK, UNKNOWN
     Route: 065
  11. LORATADINE [Concomitant]
     Active Substance: LORATADINE
     Indication: Angioedema
     Dosage: 10 MG, UNKNOWN
     Route: 065

REACTIONS (8)
  - Erysipelas [Recovered/Resolved]
  - Infection in an immunocompromised host [Recovered/Resolved]
  - Swollen tongue [Recovered/Resolved]
  - Tongue oedema [Unknown]
  - Blood pressure increased [Unknown]
  - Drug ineffective [Unknown]
  - Skin lesion [Not Recovered/Not Resolved]
  - Urticaria [Not Recovered/Not Resolved]
